FAERS Safety Report 4583088-7 (Version None)
Quarter: 2005Q1

REPORT INFORMATION
  Report Type: 
  Country: None (occurrence: None)
  Receive Date: 20050125
  Receipt Date: 20041001
  Transmission Date: 20050727
  Serious: No
  Sender: FDA-Public Use
  Company Number: USA041079984

PATIENT
  Age: 45 Year
  Sex: Female

DRUGS (1)
  1. FORTEO [Suspect]
     Indication: OSTEOPOROSIS
     Dates: start: 20040201

REACTIONS (6)
  - FATIGUE [None]
  - FEELING ABNORMAL [None]
  - HAIR DISORDER [None]
  - MENORRHAGIA [None]
  - MENSTRUAL DISORDER [None]
  - SKIN DISORDER [None]
